FAERS Safety Report 4630828-4 (Version None)
Quarter: 2005Q1

REPORT INFORMATION
  Report Type: 
  Country: None (occurrence: None)
  Receive Date: 20050331
  Receipt Date: 20050331
  Transmission Date: 20050727
  Serious: No
  Sender: FDA-Public Use
  Company Number: None

PATIENT
  Age: 61 Year
  Sex: Male
  Weight: 124.7392 kg

DRUGS (2)
  1. CYPHER SIROLIMUS -ELUTING STENT        J+J / CORDIS [Suspect]
     Indication: CORONARY ARTERY STENOSIS
     Dosage: INTRACORON
     Route: 022
     Dates: start: 20050323, end: 20050323
  2. CYPHER SIROLIMUS  -ELUTING STENT            J+J / CORDIS [Suspect]
     Indication: CORONARY ARTERY STENOSIS
     Dosage: INTRACORON
     Route: 022
     Dates: start: 20050323, end: 20050323

REACTIONS (1)
  - RASH [None]
